FAERS Safety Report 9320330 (Version 1)
Quarter: 2013Q2

REPORT INFORMATION
  Report Type: Spontaneous
  Country: US (occurrence: US)
  Receive Date: 20130530
  Receipt Date: 20130530
  Transmission Date: 20140414
  Serious: Yes (Hospitalization)
  Sender: FDA-Public Use
  Company Number: US-B.I. PHARMACEUTICALS,INC./RIDGEFIELD-2013-BI-14146BP

PATIENT
  Age: 79 Year
  Sex: Female
  Weight: 91 kg

DRUGS (9)
  1. PRADAXA [Suspect]
     Indication: ATRIAL FIBRILLATION
     Dosage: 300 MG
     Route: 048
     Dates: start: 2011
  2. ATORVASTATIN [Concomitant]
     Indication: BLOOD CHOLESTEROL INCREASED
     Dosage: 20 MG
     Route: 048
  3. METOPROLOL  ER [Concomitant]
     Indication: CARDIAC DISORDER
     Dosage: 50 MG
     Route: 048
  4. AMANTADINE [Concomitant]
     Indication: MULTIPLE SCLEROSIS
     Dosage: 200 MG
     Route: 048
  5. CLONAZEPAM [Concomitant]
     Indication: MULTIPLE SCLEROSIS
     Dosage: 0.5 MG
     Route: 048
  6. LOSARTAN [Concomitant]
     Indication: CARDIAC DISORDER
     Dosage: 50 MG
     Route: 048
  7. OXYBUTYNIN [Concomitant]
     Indication: BLADDER IRRITATION
     Dosage: 10 MG
     Route: 048
  8. DONEPEZIL [Concomitant]
     Indication: MULTIPLE SCLEROSIS
     Dosage: 5 MG
     Route: 048
  9. TIZANIDINE HYDROCHLORIDE [Concomitant]
     Indication: MULTIPLE SCLEROSIS
     Dosage: 2 MG
     Route: 048

REACTIONS (3)
  - Fatigue [Recovered/Resolved]
  - Dyspnoea [Recovered/Resolved]
  - Aortic valve stenosis [Recovered/Resolved]
